FAERS Safety Report 7551778-X (Version None)
Quarter: 2011Q2

REPORT INFORMATION
  Report Type: 
  Country: None (occurrence: None)
  Receive Date: 20110616
  Receipt Date: 20110608
  Transmission Date: 20111010
  Serious: Yes (Hospitalization)
  Sender: FDA-Public Use
  Company Number: B0722307A

PATIENT
  Age: 62 Year
  Sex: Female
  Weight: 66 kg

DRUGS (11)
  1. VALTREX [Suspect]
     Dosage: 500MG PER DAY
     Route: 048
     Dates: start: 20110426, end: 20110427
  2. PRECIPITATED CALCIUM CARBONATE [Concomitant]
  3. ALOSENN [Concomitant]
     Route: 048
  4. CINACALCET HYDROCHLORIDE [Concomitant]
     Route: 048
  5. METHYCOBAL [Concomitant]
     Route: 048
  6. RENAGEL [Concomitant]
     Route: 048
  7. GASMET [Concomitant]
     Route: 048
  8. TENORMIN [Concomitant]
     Route: 048
  9. ADALAT [Concomitant]
     Route: 048
  10. VALTREX [Suspect]
     Indication: HERPES ZOSTER
     Dosage: 1000MG PER DAY
     Route: 048
     Dates: start: 20110425, end: 20110425
  11. MEFENAMIC ACID [Concomitant]
     Route: 048

REACTIONS (5)
  - ASTERIXIS [None]
  - DYSARTHRIA [None]
  - ALTERED STATE OF CONSCIOUSNESS [None]
  - OVERDOSE [None]
  - LOSS OF CONSCIOUSNESS [None]
